FAERS Safety Report 9323183 (Version 1)
Quarter: 2013Q2

REPORT INFORMATION
  Report Type: Spontaneous
  Country: GB (occurrence: GB)
  Receive Date: 20130603
  Receipt Date: 20130603
  Transmission Date: 20140414
  Serious: Yes (Other)
  Sender: FDA-Public Use
  Company Number: GB-009507513-1305GBR016883

PATIENT
  Age: 54 Year
  Sex: Female

DRUGS (4)
  1. JANUVIA [Suspect]
     Dosage: 100 MG, UNK
     Route: 048
     Dates: start: 20130505, end: 20130508
  2. CANESTEN [Concomitant]
     Indication: CANDIDA INFECTION
     Dosage: 200 MG, UNK
     Route: 067
     Dates: start: 20130420, end: 20130423
  3. SERETIDE [Concomitant]
     Indication: ASTHMA
     Dosage: UNK
     Route: 055
     Dates: start: 20130504
  4. SEROXAT [Concomitant]
     Indication: DEPRESSION
     Dosage: 20 MG, UNK
     Route: 048
     Dates: start: 20130420

REACTIONS (2)
  - Skin mass [Recovered/Resolved]
  - Diarrhoea [Recovered/Resolved]
